FAERS Safety Report 8696387 (Version 8)
Quarter: 2013Q2

REPORT INFORMATION
  Report Type: Report from Study
  Country: JP (occurrence: JP)
  Receive Date: 20120801
  Receipt Date: 20130626
  Transmission Date: 20140414
  Serious: Yes (Hospitalization)
  Sender: FDA-Public Use
  Company Number: JP-009507513-1202USA02477

PATIENT
  Age: 65 Year
  Sex: Male
  Weight: 67.3 kg

DRUGS (6)
  1. VANIPREVIR [Suspect]
     Indication: CHRONIC HEPATITIS C
     Dosage: UNK
     Route: 048
     Dates: start: 20111019, end: 20120221
  2. PEGINTERFERON ALFA-2B [Suspect]
     Indication: CHRONIC HEPATITIS C
     Dosage: 100 ?G, QW
     Route: 058
     Dates: start: 20111019, end: 20111019
  3. PEGINTERFERON ALFA-2B [Suspect]
     Dosage: 68 ?G, QW
     Route: 058
     Dates: start: 20111026, end: 20111129
  4. PEGINTERFERON ALFA-2B [Suspect]
     Dosage: 100 ?G, QW
     Route: 058
     Dates: start: 20111206, end: 20120214
  5. RIBAVIRIN [Suspect]
     Indication: CHRONIC HEPATITIS C
     Dosage: 2 DF, BID
     Route: 048
     Dates: start: 20111019, end: 20120221
  6. AMLODIN OD [Concomitant]
     Indication: HYPERTENSION
     Dosage: 5 MG, QD
     Route: 048
     Dates: start: 20110919

REACTIONS (1)
  - Diabetes mellitus [Recovered/Resolved]
